FAERS Safety Report 10546598 (Version 1)
Quarter: 2014Q4

REPORT INFORMATION
  Report Type: Spontaneous
  Country: US (occurrence: US)
  Receive Date: 20141027
  Receipt Date: 20141027
  Transmission Date: 20150529
  Serious: No
  Sender: FDA-Public Use
  Company Number: US-ABBVIE-14P-163-1196625-00

PATIENT
  Age: 24 Year
  Sex: Female
  Weight: 53.12 kg

DRUGS (5)
  1. AMITRIPTYLINE [Concomitant]
     Active Substance: AMITRIPTYLINE
     Indication: PRODUCT USED FOR UNKNOWN INDICATION
  2. NORETHINDRONE. [Concomitant]
     Active Substance: NORETHINDRONE
     Indication: PRODUCT USED FOR UNKNOWN INDICATION
  3. RECLIPSEN [Concomitant]
     Active Substance: DESOGESTREL\ETHINYL ESTRADIOL
     Indication: CONTRACEPTION
  4. LUPRON DEPOT [Suspect]
     Active Substance: LEUPROLIDE ACETATE
     Indication: ENDOMETRIOSIS
     Dates: start: 20140117
  5. NORCO [Concomitant]
     Active Substance: ACETAMINOPHEN\HYDROCODONE BITARTRATE
     Indication: PAIN

REACTIONS (17)
  - Faeces discoloured [Recovered/Resolved]
  - Flushing [Recovered/Resolved]
  - Hot flush [Recovered/Resolved]
  - Tenderness [Unknown]
  - Abdominal pain [Unknown]
  - Thirst [Unknown]
  - Hyperhidrosis [Recovered/Resolved]
  - Hunger [Unknown]
  - Haematochezia [Recovered/Resolved]
  - Arthralgia [Unknown]
  - Arthralgia [Unknown]
  - Nausea [Unknown]
  - Migraine [Unknown]
  - Dizziness [Recovered/Resolved]
  - Back pain [Unknown]
  - Night sweats [Unknown]
  - Back pain [Unknown]

NARRATIVE: CASE EVENT DATE: 201401
